FAERS Safety Report 7285771-1 (Version None)
Quarter: 2011Q1

REPORT INFORMATION
  Report Type: 
  Country: None (occurrence: None)
  Receive Date: 20110210
  Receipt Date: 20110204
  Transmission Date: 20110831
  Serious: Yes (Hospitalization, Other)
  Sender: FDA-Public Use
  Company Number: CA-ABBOTT-11P-028-0696510-00

PATIENT
  Sex: Female
  Weight: 127.12 kg

DRUGS (6)
  1. APO-FOLIC [Concomitant]
     Indication: VITAMIN SUPPLEMENTATION
     Route: 048
     Dates: start: 20050101
  2. HUMIRA [Suspect]
     Indication: RHEUMATOID ARTHRITIS
     Route: 058
     Dates: start: 20100416
  3. HYZARR [Concomitant]
     Indication: HYPERTENSION
     Route: 048
     Dates: start: 20050101
  4. DRISTAN [Concomitant]
     Indication: RHINITIS ALLERGIC
     Dosage: 1 SPRAY TWICE DAILY
     Route: 045
     Dates: start: 20100801
  5. METHOTREXATE [Concomitant]
     Indication: ARTHRITIS
     Route: 042
     Dates: start: 20050101
  6. BUDESONIDE [Concomitant]
     Indication: RHINITIS ALLERGIC
     Dosage: 1 SPRAY TWICE DAILY
     Route: 045
     Dates: end: 20100801

REACTIONS (4)
  - AORTIC VALVE DISEASE [None]
  - AORTIC STENOSIS [None]
  - NEPHROLITHIASIS [None]
  - NASOPHARYNGITIS [None]
